FAERS Safety Report 10054971 (Version 1)
Quarter: 2014Q2

REPORT INFORMATION
  Report Type: Spontaneous
  Country: SE (occurrence: SE)
  Receive Date: 20140402
  Receipt Date: 20140402
  Transmission Date: 20141212
  Serious: Yes (Hospitalization)
  Sender: FDA-Public Use
  Company Number: ALCN2014SE002048

PATIENT
  Age: 74 Year
  Sex: Female

DRUGS (1)
  1. AZOPT [Suspect]
     Route: 047

REACTIONS (5)
  - Vomiting [Recovered/Resolved]
  - Headache [Recovered/Resolved]
  - Abdominal distension [Recovered/Resolved]
  - Cold sweat [Recovered/Resolved]
  - Dizziness [Recovered/Resolved]
